FAERS Safety Report 5885308-5 (Version None)
Quarter: 2008Q3

REPORT INFORMATION
  Report Type: 
  Country: None (occurrence: None)
  Receive Date: 20080916
  Receipt Date: 20080724
  Transmission Date: 20090109
  Serious: Yes (Hospitalization, Disabling, Other)
  Sender: FDA-Public Use
  Company Number: US-PURDUE-USA_2008_0034598

PATIENT
  Sex: Female
  Weight: 72 kg

DRUGS (1)
  1. OXYCONTIN [Suspect]
     Indication: SPINAL COLUMN STENOSIS
     Dosage: 80 MG, UNK
     Route: 048

REACTIONS (10)
  - BLINDNESS TRANSIENT [None]
  - DEHYDRATION [None]
  - DIABETES MELLITUS [None]
  - DRUG EFFECT DECREASED [None]
  - DRUG WITHDRAWAL SYNDROME [None]
  - LOSS OF CONSCIOUSNESS [None]
  - MUSCULAR WEAKNESS [None]
  - OSTEOPOROSIS [None]
  - SPINAL FRACTURE [None]
  - VISUAL ACUITY REDUCED [None]
